FAERS Safety Report 14974623 (Version 1)
Quarter: 2018Q2

REPORT INFORMATION
  Report Type: Report from Study
  Country: IT (occurrence: IT)
  Receive Date: 20180605
  Receipt Date: 20180605
  Transmission Date: 20180711
  Serious: Yes (Hospitalization)
  Sender: FDA-Public Use
  Company Number: IT-EXELIXIS-XL18417011290

PATIENT
  Age: 71 Year
  Sex: Male
  Weight: 90 kg

DRUGS (6)
  1. ARIXTRA [Concomitant]
     Active Substance: FONDAPARINUX SODIUM
  2. ENAPREN [Concomitant]
     Active Substance: ENALAPRIL MALEATE
  3. XL184 [Suspect]
     Active Substance: CABOZANTINIB
     Dosage: 40 MG, QD
     Route: 048
  4. XL184 [Suspect]
     Active Substance: CABOZANTINIB
     Indication: HEPATOCELLULAR CARCINOMA
     Dosage: 60 MG, QD
     Route: 048
     Dates: start: 20141007
  5. CLORTALIDONE [Concomitant]
  6. ATENOLOLO [Concomitant]
     Active Substance: ATENOLOL

REACTIONS (1)
  - Necrosis [Not Recovered/Not Resolved]

NARRATIVE: CASE EVENT DATE: 20171031
